FAERS Safety Report 7421121-5 (Version None)
Quarter: 2011Q2

REPORT INFORMATION
  Report Type: 
  Country: None (occurrence: None)
  Receive Date: 20110408
  Receipt Date: 20110330
  Transmission Date: 20111010
  Serious: Yes (Other)
  Sender: FDA-Public Use
  Company Number: FR-1185626

PATIENT
  Age: 55 Year
  Sex: Female

DRUGS (5)
  1. UTROGESTAN [Concomitant]
  2. DEROXAT [Concomitant]
  3. OESTRODOSE [Concomitant]
  4. XANAX [Concomitant]
  5. TRAVATAN [Suspect]
     Indication: OCULAR HYPERTENSION
     Dosage: OPHTHALMIC
     Route: 047
     Dates: start: 20110101

REACTIONS (1)
  - RETINAL HAEMORRHAGE [None]
